FAERS Safety Report 5687389-0 (Version None)
Quarter: 2008Q1

REPORT INFORMATION
  Report Type: 
  Country: None (occurrence: None)
  Receive Date: 20080328
  Receipt Date: 20070427
  Transmission Date: 20080703
  Serious: No
  Sender: FDA-Public Use
  Company Number: US-BAYER-US-2007-014822

PATIENT
  Age: 25 Year
  Sex: Female
  Weight: 69 kg

DRUGS (3)
  1. MIRENA [Suspect]
     Indication: CONTRACEPTION
     Route: 015
     Dates: start: 20070221, end: 20070426
  2. PAXIL [Concomitant]
     Dosage: UNIT DOSE: 10 MG
     Dates: start: 20070301
  3. ATIVAN [Concomitant]
     Dosage: UNIT DOSE: 0.25 MG
     Dates: start: 20070301

REACTIONS (9)
  - ABDOMINAL DISTENSION [None]
  - ABDOMINAL PAIN [None]
  - ACNE [None]
  - ANXIETY [None]
  - CONSTIPATION [None]
  - DEPRESSION [None]
  - FATIGUE [None]
  - MOOD SWINGS [None]
  - WEIGHT INCREASED [None]
